FAERS Safety Report 6539135-6 (Version None)
Quarter: 2010Q1

REPORT INFORMATION
  Report Type: 
  Country: None (occurrence: None)
  Receive Date: 20100112
  Receipt Date: 20091224
  Transmission Date: 20100710
  Serious: Yes (Other)
  Sender: FDA-Public Use
  Company Number: 003900

PATIENT
  Sex: Female
  Weight: 79.8 kg

DRUGS (7)
  1. CERTOLIZUMAB PEGOL (CERTOLIZUMAB PEGOL) [Suspect]
     Indication: RHEUMATOID ARTHRITIS
     Dosage: (200 MG 1X/2 WEEKS, STUDY CDP870-050), (400 MG 1X/2 WEEKS), ( 200 MG 1X/2 WEEKS) ALL 3 SUBCUTANEOUS
     Route: 058
     Dates: start: 20051214, end: 20060531
  2. CERTOLIZUMAB PEGOL (CERTOLIZUMAB PEGOL) [Suspect]
     Indication: RHEUMATOID ARTHRITIS
     Dosage: (200 MG 1X/2 WEEKS, STUDY CDP870-050), (400 MG 1X/2 WEEKS), ( 200 MG 1X/2 WEEKS) ALL 3 SUBCUTANEOUS
     Route: 058
     Dates: start: 20060531, end: 20071031
  3. CERTOLIZUMAB PEGOL (CERTOLIZUMAB PEGOL) [Suspect]
     Indication: RHEUMATOID ARTHRITIS
     Dosage: (200 MG 1X/2 WEEKS, STUDY CDP870-050), (400 MG 1X/2 WEEKS), ( 200 MG 1X/2 WEEKS) ALL 3 SUBCUTANEOUS
     Route: 058
     Dates: start: 20071114, end: 20091224
  4. METHOTREXATE [Concomitant]
  5. FOLIC ACID [Concomitant]
  6. ATENOLOL [Concomitant]
  7. ATORVASTATIN CALCIUM [Concomitant]

REACTIONS (4)
  - COLON CANCER [None]
  - GASTROINTESTINAL DISORDER [None]
  - HYPERCHOLESTEROLAEMIA [None]
  - HYPERTENSION [None]
